FAERS Safety Report 7376855-8 (Version None)
Quarter: 2011Q1

REPORT INFORMATION
  Report Type: 
  Country: None (occurrence: None)
  Receive Date: 20110325
  Receipt Date: 20110318
  Transmission Date: 20110831
  Serious: Yes (Hospitalization, Other)
  Sender: FDA-Public Use
  Company Number: US-US-EMD SERONO, INC.-230419K07USA

PATIENT
  Sex: Female
  Weight: 55 kg

DRUGS (4)
  1. REBIF [Suspect]
     Route: 058
     Dates: start: 20070215
  2. REBIF [Suspect]
     Indication: MULTIPLE SCLEROSIS
     Route: 058
     Dates: start: 20050511, end: 20070101
  3. PITUITARY TUMOR MEDICATIONS [Concomitant]
  4. UNSPECIFIED MEDICATIONS [Concomitant]

REACTIONS (5)
  - GRAND MAL CONVULSION [None]
  - PAIN [None]
  - RENAL FAILURE [None]
  - COGNITIVE DISORDER [None]
  - PITUITARY TUMOUR [None]
